FAERS Safety Report 18649804 (Version 1)
Quarter: 2020Q4

REPORT INFORMATION
  Report Type: Spontaneous
  Country: US (occurrence: US)
  Receive Date: 20201222
  Receipt Date: 20201222
  Transmission Date: 20210114
  Serious: No
  Sender: FDA-Public Use
  Company Number: US-BAYER-2020-283384

PATIENT
  Sex: Female

DRUGS (1)
  1. LEVONORGESTREL IUS [UNKNOWN] [Suspect]
     Active Substance: LEVONORGESTREL
     Dosage: UNSPECIFIED ?G PER DAY CONTINUOUSLY
     Route: 015

REACTIONS (4)
  - Dizziness [None]
  - Cough [None]
  - Aphonia [None]
  - Abdominal pain upper [None]
